FAERS Safety Report 6238931-2 (Version None)
Quarter: 2009Q2

REPORT INFORMATION
  Report Type: 
  Country: None (occurrence: None)
  Receive Date: 20090622
  Receipt Date: 20090610
  Transmission Date: 20091009
  Serious: Yes (Hospitalization, Other)
  Sender: FDA-Public Use
  Company Number: AR-PFIZER INC-2009212240

PATIENT
  Age: 55 Year

DRUGS (2)
  1. SUTENT [Suspect]
     Indication: RENAL CANCER
     Dosage: 50 MG, DAILY, 4/2 SCHEME, TDD 50 MG
     Route: 048
     Dates: start: 20090401
  2. CORTICOSTEROIDS [Concomitant]
     Dosage: UNK
     Route: 048

REACTIONS (3)
  - HAEMOPTYSIS [None]
  - INCORRECT DOSE ADMINISTERED [None]
  - THROMBOCYTOPENIC PURPURA [None]
